FAERS Safety Report 15556454 (Version 1)
Quarter: 2018Q4

REPORT INFORMATION
  Report Type: Spontaneous
  Country: US (occurrence: US)
  Receive Date: 20181026
  Receipt Date: 20181026
  Transmission Date: 20190205
  Serious: Yes (Hospitalization)
  Sender: FDA-Public Use
  Company Number: US-ENDO PHARMACEUTICALS INC-2018-042596

PATIENT
  Age: 48 Year
  Sex: Male
  Weight: 147.12 kg

DRUGS (2)
  1. TESTOSTERONE CYPIONATE. [Suspect]
     Active Substance: TESTOSTERONE CYPIONATE
     Indication: ANDROGEN REPLACEMENT THERAPY
     Dosage: 200 MG/ML, 0.75 ML, Q2W
     Route: 030
     Dates: start: 20120531, end: 201212
  2. TESTIM [Suspect]
     Active Substance: TESTOSTERONE
     Indication: ANDROGEN REPLACEMENT THERAPY
     Dosage: 1% GEL, 50 MG/5 G TUBE DAILY
     Route: 061
     Dates: start: 20120405, end: 201205

REACTIONS (1)
  - Phlebitis superficial [Unknown]

NARRATIVE: CASE EVENT DATE: 20130114
